FAERS Safety Report 24741514 (Version 2)
Quarter: 2025Q1

REPORT INFORMATION
  Report Type: Report from Study
  Country: US (occurrence: US)
  Receive Date: 20241217
  Receipt Date: 20250121
  Transmission Date: 20250409
  Serious: Yes (Other)
  Sender: INSMED
  Company Number: US-INSMED, INC.-2024-03209-US

PATIENT
  Sex: Male

DRUGS (1)
  1. ARIKAYCE [Suspect]
     Active Substance: AMIKACIN
     Indication: Mycobacterium avium complex infection
     Dosage: 590 MILLIGRAM, QD
     Route: 055
     Dates: start: 20240801, end: 20240805

REACTIONS (12)
  - Loss of consciousness [Unknown]
  - Ill-defined disorder [Unknown]
  - Dyspnoea [Not Recovered/Not Resolved]
  - Movement disorder [Unknown]
  - Dysphagia [Recovering/Resolving]
  - Feeding disorder [Recovering/Resolving]
  - Lung disorder [Unknown]
  - Pharyngeal swelling [Unknown]
  - Adverse drug reaction [Unknown]
  - Weight decreased [Recovering/Resolving]
  - Wheezing [Not Recovered/Not Resolved]
  - Illness [Unknown]

NARRATIVE: CASE EVENT DATE: 20240101
